FAERS Safety Report 8548873-5 (Version None)
Quarter: 2012Q3

REPORT INFORMATION
  Report Type: 
  Country: None (occurrence: None)
  Receive Date: 20120730
  Receipt Date: 20120725
  Transmission Date: 20120928
  Serious: Yes (Other)
  Sender: FDA-Public Use
  Company Number: PHFR2012GB004188

PATIENT
  Age: 16 Year
  Sex: Male

DRUGS (5)
  1. CLOZAPINE [Suspect]
     Indication: PSYCHOTIC DISORDER
     Dosage: 350 MG, DAILY
     Route: 048
  2. CLOZAPINE [Suspect]
     Dosage: 350 MG, DAILY
     Route: 048
     Dates: start: 20120601
  3. HYOSCINE HYDROBROMIDE [Concomitant]
     Dosage: UNK UKN, UNK
  4. CLOZAPINE [Suspect]
     Dosage: UNK UKN, UNK
  5. CLOZAPINE [Suspect]
     Dosage: 300 MG, DAILY
     Route: 048
     Dates: start: 20120201

REACTIONS (4)
  - DYSKINESIA [None]
  - CATATONIA [None]
  - CONDITION AGGRAVATED [None]
  - DYSTONIA [None]
